FAERS Safety Report 19990009 (Version 1)
Quarter: 2021Q4

REPORT INFORMATION
  Report Type: Spontaneous
  Country: RU (occurrence: RU)
  Receive Date: 20211025
  Receipt Date: 20211025
  Transmission Date: 20220303
  Serious: Yes (Hospitalization, Other)
  Sender: FDA-Public Use
  Company Number: RU-BOEHRINGERINGELHEIM-2021-BI-134278

PATIENT
  Age: 38 Year
  Sex: Female

DRUGS (1)
  1. PRADAXA [Suspect]
     Active Substance: DABIGATRAN ETEXILATE MESYLATE
     Indication: Pulmonary embolism
     Route: 048
     Dates: start: 20211019, end: 20211021

REACTIONS (1)
  - Cardiac myxoma [Unknown]

NARRATIVE: CASE EVENT DATE: 20211021
